FAERS Safety Report 4853281-4 (Version None)
Quarter: 2005Q4

REPORT INFORMATION
  Report Type: 
  Country: None (occurrence: None)
  Receive Date: 20051214
  Receipt Date: 20051115
  Transmission Date: 20060501
  Serious: Yes (Hospitalization)
  Sender: FDA-Public Use
  Company Number: US-GLAXOSMITHKLINE-A0582379A

PATIENT
  Age: 19 Year
  Sex: Female

DRUGS (3)
  1. WELLBUTRIN XL [Suspect]
     Indication: POSTPARTUM DEPRESSION
     Route: 048
     Dates: start: 20051114, end: 20051114
  2. BENZODIAZEPIN [Suspect]
     Indication: DRUG USE FOR UNKNOWN INDICATION
     Route: 065
  3. NO CONCURRENT MEDICATION [Concomitant]

REACTIONS (5)
  - CONVULSION [None]
  - DRUG EXPOSURE DURING PREGNANCY [None]
  - INTENTIONAL OVERDOSE [None]
  - POSTICTAL STATE [None]
  - TACHYCARDIA [None]
